FAERS Safety Report 23116043 (Version 1)
Quarter: 2023Q4

REPORT INFORMATION
  Report Type: Spontaneous
  Country: BR (occurrence: BR)
  Receive Date: 20231027
  Receipt Date: 20231027
  Transmission Date: 20240110
  Serious: Yes (Other)
  Sender: FDA-Public Use
  Company Number: BR-BAXTER-2023BAX034037

PATIENT

DRUGS (1)
  1. GLYCINE [Suspect]
     Active Substance: GLYCINE
     Route: 065

REACTIONS (2)
  - Shock [Unknown]
  - Product availability issue [Unknown]
